FAERS Safety Report 18280358 (Version 1)
Quarter: 2020Q3

REPORT INFORMATION
  Report Type: Report from Study
  Country: US (occurrence: US)
  Receive Date: 20200917
  Receipt Date: 20200917
  Transmission Date: 20201103
  Serious: Yes (Hospitalization, Other)
  Sender: FDA-Public Use
  Company Number: US-JNJFOC-A-NJ2019-194232

PATIENT
  Age: 66 Year
  Sex: Female
  Weight: 75.36 kg

DRUGS (10)
  1. ADCIRCA [Concomitant]
     Active Substance: TADALAFIL
     Indication: PULMONARY HYPERTENSION
     Dosage: UNK
  2. ADEMPAS [Suspect]
     Active Substance: RIOCIGUAT
     Indication: PRODUCT USED FOR UNKNOWN INDICATION
     Dosage: 1 MG, TID
     Route: 065
  3. REMODULIN [Suspect]
     Active Substance: TREPROSTINIL
     Indication: PRODUCT USED FOR UNKNOWN INDICATION
     Route: 065
  4. OPSUMIT [Suspect]
     Active Substance: MACITENTAN
     Indication: PULMONARY ARTERIAL HYPERTENSION
     Dosage: 10 MG, QD
     Route: 048
  5. UPTRAVI [Suspect]
     Active Substance: SELEXIPAG
     Indication: PULMONARY ARTERIAL HYPERTENSION
     Dosage: 200 MCG, BID
     Route: 048
  6. ADEMPAS [Suspect]
     Active Substance: RIOCIGUAT
     Dosage: 0.5 MG
     Route: 065
  7. TYVASO [Suspect]
     Active Substance: TREPROSTINIL
     Dosage: UNK
     Route: 048
     Dates: start: 20200731
  8. TYVASO [Suspect]
     Active Substance: TREPROSTINIL
     Indication: PRODUCT USED FOR UNKNOWN INDICATION
     Dosage: 6 BREATHS, 4 TIMES A DAY
     Route: 048
  9. ADEMPAS [Suspect]
     Active Substance: RIOCIGUAT
     Dosage: 1 MG
     Route: 065
     Dates: start: 20190816
  10. ELIQUIS [Concomitant]
     Active Substance: APIXABAN

REACTIONS (27)
  - Dyspnoea [Unknown]
  - Therapy change [Unknown]
  - Device related thrombosis [Unknown]
  - Pulmonary hypertension [Recovering/Resolving]
  - Oedema [Unknown]
  - Sepsis [Unknown]
  - Myalgia [Unknown]
  - Pain in jaw [Unknown]
  - Nausea [Unknown]
  - Feeling abnormal [Not Recovered/Not Resolved]
  - Chest discomfort [Unknown]
  - Anaemia [Unknown]
  - Cardiac failure congestive [Unknown]
  - Neck pain [Unknown]
  - Hypoxia [Unknown]
  - Pain [Unknown]
  - Pyrexia [Not Recovered/Not Resolved]
  - Thrombosis [Unknown]
  - Musculoskeletal pain [Unknown]
  - Vomiting [Unknown]
  - Constipation [Unknown]
  - Ascites [Unknown]
  - Headache [Unknown]
  - Weight increased [Unknown]
  - Hospitalisation [Unknown]
  - Palpitations [Not Recovered/Not Resolved]
  - Walking distance test abnormal [Not Recovered/Not Resolved]

NARRATIVE: CASE EVENT DATE: 202007
